FAERS Safety Report 24187197 (Version 2)
Quarter: 2024Q3

REPORT INFORMATION
  Report Type: Spontaneous
  Country: IE (occurrence: IE)
  Receive Date: 20240808
  Receipt Date: 20240823
  Transmission Date: 20241017
  Serious: Yes (Other)
  Sender: AMGEN
  Company Number: IE-HPRA-2024-114549

PATIENT
  Age: 70 Year
  Sex: Female

DRUGS (1)
  1. PROLIA [Suspect]
     Active Substance: DENOSUMAB
     Indication: Osteoporosis
     Dosage: 60 MILLIGRAM, Q6MO
     Route: 058
     Dates: start: 20210101, end: 20240722

REACTIONS (3)
  - Spinal fracture [Recovered/Resolved]
  - Therapeutic response shortened [Recovered/Resolved]
  - Rebound effect [Unknown]

NARRATIVE: CASE EVENT DATE: 20240627
